FAERS Safety Report 10678181 (Version 1)
Quarter: 2014Q4

REPORT INFORMATION
  Report Type: Spontaneous
  Country: GB (occurrence: None)
  Receive Date: 20141223
  Receipt Date: 20141223
  Transmission Date: 20150529
  Serious: Yes (Hospitalization)
  Sender: FDA-Public Use
  Company Number: IPC201412-000682

PATIENT
  Age: 56 Year
  Sex: Female

DRUGS (9)
  1. SERTRALINE [Concomitant]
     Active Substance: SERTRALINE HYDROCHLORIDE
  2. GLIPERAMIDE [Concomitant]
  3. THYROXINE [Concomitant]
     Active Substance: LEVOTHYROXINE
  4. GABAPENTIN (GABAPENTIN) [Concomitant]
     Active Substance: GABAPENTIN
  5. CANDESARTAN (CANDESARTAN) [Concomitant]
     Active Substance: CANDESARTAN
  6. WARFARIN (WARFARIN) [Suspect]
     Active Substance: WARFARIN
  7. FUROSEMIDE (FUROSEMIDE) [Concomitant]
     Active Substance: FUROSEMIDE
  8. BISOPROLOL (BISOPROLOL) [Concomitant]
     Active Substance: BISOPROLOL
  9. SIMVASTATIN (SIMVASTATIN) [Concomitant]
     Active Substance: SIMVASTATIN

REACTIONS (3)
  - Skin necrosis [None]
  - Fat necrosis [None]
  - Calciphylaxis [None]
